FAERS Safety Report 5519976-4 (Version None)
Quarter: 2007Q4

REPORT INFORMATION
  Report Type: 
  Country: None (occurrence: None)
  Receive Date: 20071116
  Receipt Date: 20071023
  Transmission Date: 20080405
  Serious: No
  Sender: FDA-Public Use
  Company Number: US-BRISTOL-MYERS SQUIBB COMPANY-13954805

PATIENT
  Age: 76 Year
  Sex: Male

DRUGS (1)
  1. QUESTRAN [Suspect]
     Indication: DIARRHOEA
     Dosage: 1 DOSAGE FORM = 1 PACKET.
     Route: 048
     Dates: start: 20070601

REACTIONS (1)
  - DRUG INEFFECTIVE [None]
